FAERS Safety Report 8761898 (Version 1)
Quarter: 2012Q4

REPORT INFORMATION
  Report Type: 
  Country: CA (occurrence: CA)
  Receive Date: 20120830
  Receipt Date: 20120830
  Transmission Date: 20130627
  Serious: Yes (Other)
  Sender: FDA-Public Use
  Company Number: CA-MPIJNJ-2012-05966

PATIENT

DRUGS (1)
  1. VELCADE [Suspect]
     Indication: LIGHT CHAIN DISEASE
     Dosage: 1.3 mg/m2, 2/week

REACTIONS (3)
  - Gastrointestinal motility disorder [Recovered/Resolved]
  - Weight decreased [Unknown]
  - Azotaemia [Unknown]
